FAERS Safety Report 6133981-9 (Version None)
Quarter: 2009Q1

REPORT INFORMATION
  Report Type: 
  Country: None (occurrence: None)
  Receive Date: 20090326
  Receipt Date: 20090318
  Transmission Date: 20090719
  Serious: Yes (Other)
  Sender: FDA-Public Use
  Company Number: PHHY2009BR10372

PATIENT
  Age: 55 Year
  Sex: Male
  Weight: 92 kg

DRUGS (5)
  1. GLEEVEC [Suspect]
     Indication: CHRONIC MYELOID LEUKAEMIA
     Dosage: 800 MG/DAY
     Route: 048
  2. CORTISONE [Concomitant]
     Dosage: 40 MG/DAY
     Route: 048
  3. CORTISONE [Concomitant]
     Dosage: 20 MG/DAY
     Route: 048
  4. CORTISONE [Concomitant]
     Dosage: 10 MG/DAY
     Route: 048
  5. CORTISONE [Concomitant]
     Dosage: 5 MG/DAY
     Route: 048

REACTIONS (10)
  - ANAEMIA [None]
  - ANORECTAL DISCOMFORT [None]
  - BLAST CRISIS IN MYELOGENOUS LEUKAEMIA [None]
  - FLATULENCE [None]
  - FREQUENT BOWEL MOVEMENTS [None]
  - MUCOSAL DRYNESS [None]
  - PROSTATIC SPECIFIC ANTIGEN INCREASED [None]
  - SKIN DISORDER [None]
  - THROMBOPHLEBITIS [None]
  - URETHRAL DISCHARGE [None]
